FAERS Safety Report 9745038 (Version 1)
Quarter: 2013Q4

REPORT INFORMATION
  Report Type: Spontaneous
  Country: FR (occurrence: FR)
  Receive Date: 20131211
  Receipt Date: 20131211
  Transmission Date: 20140711
  Serious: Yes (Hospitalization)
  Sender: FDA-Public Use
  Company Number: FR-GE HEALTHCARE MEDICAL DIAGNOSTICS-VISP-PR-1312S-0940

PATIENT
  Age: 73 Year
  Sex: Female

DRUGS (9)
  1. VISIPAQUE [Suspect]
     Indication: PRODUCT USED FOR UNKNOWN INDICATION
     Route: 042
     Dates: start: 20130924, end: 20130924
  2. VISIPAQUE [Suspect]
     Indication: THERAPEUTIC PROCEDURE
  3. ALPRAZOLAM [Concomitant]
  4. LEVOTHYROX [Concomitant]
  5. PLAVIX [Concomitant]
  6. RILMENIDINE [Concomitant]
  7. SEREVENT [Concomitant]
  8. TRINITRINE [Concomitant]
  9. ZOPICLONE [Concomitant]

REACTIONS (4)
  - Generalised erythema [Recovered/Resolved]
  - Pruritus [Recovered/Resolved]
  - Oedema peripheral [Recovered/Resolved]
  - Dermatitis bullous [Recovered/Resolved]
